FAERS Safety Report 25712224 (Version 1)
Quarter: 2025Q3

REPORT INFORMATION
  Report Type: Spontaneous
  Country: EU (occurrence: EU)
  Receive Date: 20250821
  Receipt Date: 20250821
  Transmission Date: 20251021
  Serious: Yes (Hospitalization)
  Sender: MYLAN
  Company Number: None

PATIENT
  Age: 88 Year
  Sex: Male

DRUGS (20)
  1. VENLAFAXINE HYDROCHLORIDE [Suspect]
     Active Substance: VENLAFAXINE HYDROCHLORIDE
     Indication: Depression
     Dosage: 75 MILLIGRAM, QD (75 MG PROLONGED RELEASE AT 8 AM )
     Dates: start: 2024, end: 20250730
  2. VENLAFAXINE HYDROCHLORIDE [Suspect]
     Active Substance: VENLAFAXINE HYDROCHLORIDE
     Dosage: 75 MILLIGRAM, QD (75 MG PROLONGED RELEASE AT 8 AM )
     Route: 048
     Dates: start: 2024, end: 20250730
  3. VENLAFAXINE HYDROCHLORIDE [Suspect]
     Active Substance: VENLAFAXINE HYDROCHLORIDE
     Dosage: 75 MILLIGRAM, QD (75 MG PROLONGED RELEASE AT 8 AM )
     Route: 048
     Dates: start: 2024, end: 20250730
  4. VENLAFAXINE HYDROCHLORIDE [Suspect]
     Active Substance: VENLAFAXINE HYDROCHLORIDE
     Dosage: 75 MILLIGRAM, QD (75 MG PROLONGED RELEASE AT 8 AM )
     Dates: start: 2024, end: 20250730
  5. HYDROCHLOROTHIAZIDE\RAMIPRIL [Suspect]
     Active Substance: HYDROCHLOROTHIAZIDE\RAMIPRIL
     Indication: Hypertension
     Dosage: UNK, QD (5/25 MG AT 8 AM )
     Dates: start: 2025, end: 20250730
  6. HYDROCHLOROTHIAZIDE\RAMIPRIL [Suspect]
     Active Substance: HYDROCHLOROTHIAZIDE\RAMIPRIL
     Dosage: UNK, QD (5/25 MG AT 8 AM )
     Route: 048
     Dates: start: 2025, end: 20250730
  7. HYDROCHLOROTHIAZIDE\RAMIPRIL [Suspect]
     Active Substance: HYDROCHLOROTHIAZIDE\RAMIPRIL
     Dosage: UNK, QD (5/25 MG AT 8 AM )
     Route: 048
     Dates: start: 2025, end: 20250730
  8. HYDROCHLOROTHIAZIDE\RAMIPRIL [Suspect]
     Active Substance: HYDROCHLOROTHIAZIDE\RAMIPRIL
     Dosage: UNK, QD (5/25 MG AT 8 AM )
     Dates: start: 2025, end: 20250730
  9. CARVEDILOL [Concomitant]
     Active Substance: CARVEDILOL
     Indication: Hypertension
     Dosage: 12.5 MILLIGRAM, QD (25 MG 1/2 TABLET AT 8 AM )
  10. CARVEDILOL [Concomitant]
     Active Substance: CARVEDILOL
     Dosage: 12.5 MILLIGRAM, QD (25 MG 1/2 TABLET AT 8 AM )
     Route: 048
  11. CARVEDILOL [Concomitant]
     Active Substance: CARVEDILOL
     Dosage: 12.5 MILLIGRAM, QD (25 MG 1/2 TABLET AT 8 AM )
     Route: 048
  12. CARVEDILOL [Concomitant]
     Active Substance: CARVEDILOL
     Dosage: 12.5 MILLIGRAM, QD (25 MG 1/2 TABLET AT 8 AM )
  13. ATORVASTATIN [Concomitant]
     Active Substance: ATORVASTATIN
     Indication: Dyslipidaemia
     Dosage: 10 MILLIGRAM, QD (10 MG AT 9PM )
  14. ATORVASTATIN [Concomitant]
     Active Substance: ATORVASTATIN
     Dosage: 10 MILLIGRAM, QD (10 MG AT 9PM )
     Route: 048
  15. ATORVASTATIN [Concomitant]
     Active Substance: ATORVASTATIN
     Dosage: 10 MILLIGRAM, QD (10 MG AT 9PM )
     Route: 048
  16. ATORVASTATIN [Concomitant]
     Active Substance: ATORVASTATIN
     Dosage: 10 MILLIGRAM, QD (10 MG AT 9PM )
  17. SILODOSIN [Concomitant]
     Active Substance: SILODOSIN
     Indication: Benign prostatic hyperplasia
     Dosage: 0.4 MILLIGRAM, QD (0.4 MG AT 9PM )
  18. SILODOSIN [Concomitant]
     Active Substance: SILODOSIN
     Dosage: 0.4 MILLIGRAM, QD (0.4 MG AT 9PM )
     Route: 048
  19. SILODOSIN [Concomitant]
     Active Substance: SILODOSIN
     Dosage: 0.4 MILLIGRAM, QD (0.4 MG AT 9PM )
     Route: 048
  20. SILODOSIN [Concomitant]
     Active Substance: SILODOSIN
     Dosage: 0.4 MILLIGRAM, QD (0.4 MG AT 9PM )

REACTIONS (2)
  - Hypokalaemia [Recovered/Resolved]
  - Hyponatraemia [Recovering/Resolving]

NARRATIVE: CASE EVENT DATE: 20250730
